FAERS Safety Report 9696662 (Version 1)
Quarter: 2013Q4

REPORT INFORMATION
  Report Type: Spontaneous
  Country: US (occurrence: None)
  Receive Date: 20131115
  Receipt Date: 20131115
  Transmission Date: 20140711
  Serious: Yes (Hospitalization, Other)
  Sender: FDA-Public Use
  Company Number: HA13-403-AE

PATIENT
  Age: 80 Year
  Sex: Male
  Weight: 89.81 kg

DRUGS (4)
  1. SMZ/ TMP TABLETS, USP 800 MG/ 160 MG (AMNEAL) [Suspect]
     Indication: CYSTITIS
     Route: 048
     Dates: start: 20130911, end: 20130919
  2. LISINOPRIL [Concomitant]
  3. METFORMIN [Concomitant]
  4. CAREDILOL [Concomitant]

REACTIONS (7)
  - Blood potassium increased [None]
  - Vomiting [None]
  - Hypotension [None]
  - Snoring [None]
  - Heart rate decreased [None]
  - Injury [None]
  - Cardiac arrest [None]
